FAERS Safety Report 6073960-3 (Version None)
Quarter: 2009Q1

REPORT INFORMATION
  Report Type: 
  Country: None (occurrence: None)
  Receive Date: 20090211
  Receipt Date: 20090203
  Transmission Date: 20090719
  Serious: Yes (Other)
  Sender: FDA-Public Use
  Company Number: PHHY2009GB01539

PATIENT
  Sex: Male

DRUGS (1)
  1. CLOZARIL [Suspect]
     Indication: SCHIZOPHRENIA
     Dosage: UNK
     Route: 048
     Dates: start: 20000808

REACTIONS (7)
  - ABDOMINAL DISCOMFORT [None]
  - EXTRAPYRAMIDAL DISORDER [None]
  - HAEMOGLOBIN DECREASED [None]
  - HAEMORRHAGE [None]
  - PEPTIC ULCER PERFORATION [None]
  - SALIVARY HYPERSECRETION [None]
  - SURGERY [None]
